FAERS Safety Report 5114203-4 (Version None)
Quarter: 2006Q3

REPORT INFORMATION
  Report Type: 
  Country: None (occurrence: None)
  Receive Date: 20060925
  Receipt Date: 20060915
  Transmission Date: 20061208
  Serious: Yes (Hospitalization)
  Sender: FDA-Public Use
  Company Number: FR-SANOFI-SYNTHELABO-A02200602349

PATIENT
  Age: 40 Year
  Sex: Male

DRUGS (6)
  1. PREVISCAN [Concomitant]
     Indication: THROMBOSIS
     Dosage: UNK
     Route: 048
  2. NEXIUM [Concomitant]
     Indication: DRUG USE FOR UNKNOWN INDICATION
     Dosage: UNK
     Route: 048
  3. AVLOCARDYL [Concomitant]
     Indication: DRUG USE FOR UNKNOWN INDICATION
     Dosage: UNK
     Route: 048
  4. PLAVIX [Suspect]
     Indication: THROMBOSIS
     Route: 048
     Dates: start: 20050101, end: 20060501
  5. ANTIBIOTIC DRUGS [Concomitant]
     Indication: DENTAL CARE
     Dosage: UNK
     Route: 065
  6. SMECTA [Concomitant]
     Indication: DIARRHOEA
     Dosage: UNK
     Route: 048

REACTIONS (3)
  - ASCITES [None]
  - GRANULOMATOUS LIVER DISEASE [None]
  - HEPATIC ENZYME ABNORMAL [None]
